FAERS Safety Report 19587224 (Version 2)
Quarter: 2021Q4

REPORT INFORMATION
  Report Type: Report from Study
  Country: MX (occurrence: MX)
  Receive Date: 20210721
  Receipt Date: 20211021
  Transmission Date: 20220303
  Serious: Yes (Disabling, Other)
  Sender: FDA-Public Use
  Company Number: MX-SA-SAC20210111000034

PATIENT
  Age: 62 Year
  Sex: Female
  Weight: 63 kg

DRUGS (2)
  1. DUPILUMAB [Suspect]
     Active Substance: DUPILUMAB
     Indication: Dermatitis atopic
     Dosage: 300 MG, Q3W
     Route: 030
     Dates: start: 20190628
  2. DUPILUMAB [Suspect]
     Active Substance: DUPILUMAB
     Dosage: UNK, Q6W
     Route: 030
     Dates: start: 20211015

REACTIONS (9)
  - Eye disorder [Unknown]
  - Blindness unilateral [Unknown]
  - Macular oedema [Unknown]
  - Retinal vascular disorder [Recovered/Resolved with Sequelae]
  - Myopia [Recovered/Resolved with Sequelae]
  - Mass [Not Recovered/Not Resolved]
  - Dry eye [Recovered/Resolved with Sequelae]
  - Inappropriate schedule of product administration [Unknown]
  - Incorrect route of product administration [Unknown]

NARRATIVE: CASE EVENT DATE: 20190628
